FAERS Safety Report 7481827-9 (Version None)
Quarter: 2011Q2

REPORT INFORMATION
  Report Type: 
  Country: None (occurrence: None)
  Receive Date: 20110516
  Receipt Date: 20110509
  Transmission Date: 20111010
  Serious: Yes (Other)
  Sender: FDA-Public Use
  Company Number: US-JNJFOC-20110304737

PATIENT
  Sex: Female

DRUGS (2)
  1. LEVAQUIN [Suspect]
     Indication: DIVERTICULITIS
     Route: 048
     Dates: start: 20090513, end: 20090519
  2. LEVAQUIN [Suspect]
     Indication: PRODUCT USED FOR UNKNOWN INDICATION
     Route: 048
     Dates: start: 20090601

REACTIONS (3)
  - MENISCUS LESION [None]
  - TENDONITIS [None]
  - MUSCULOSKELETAL PAIN [None]
